FAERS Safety Report 9253992 (Version 1)
Quarter: 2013Q2

REPORT INFORMATION
  Report Type: Spontaneous
  Country: US (occurrence: None)
  Receive Date: 20130422
  Receipt Date: 20130422
  Transmission Date: 20140414
  Serious: No
  Sender: FDA-Public Use
  Company Number: None

PATIENT
  Age: 53 Year
  Sex: Female

DRUGS (2)
  1. LEVOFLOXACIN [Suspect]
     Indication: BRONCHITIS
     Dates: end: 20130414
  2. LEVOFLOXACIN [Suspect]
     Indication: NASOPHARYNGITIS
     Dates: end: 20130414

REACTIONS (3)
  - Arthralgia [None]
  - Tendon disorder [None]
  - Sleep disorder [None]
